FAERS Safety Report 19610923 (Version 2)
Quarter: 2021Q3

REPORT INFORMATION
  Report Type: Spontaneous
  Country: US (occurrence: US)
  Receive Date: 20210726
  Receipt Date: 20210914
  Transmission Date: 20211014
  Serious: Yes (Other)
  Sender: FDA-Public Use
  Company Number: US-AMGEN-USASP2021113005

PATIENT
  Age: 49 Year
  Sex: Female

DRUGS (2)
  1. CORLANOR [Suspect]
     Active Substance: IVABRADINE HYDROCHLORIDE
     Indication: HEART RATE INCREASED
  2. CORLANOR [Suspect]
     Active Substance: IVABRADINE HYDROCHLORIDE
     Indication: CARDIAC FAILURE CONGESTIVE
     Dosage: 5 MILLIGRAM, BID
     Route: 065
     Dates: start: 2015

REACTIONS (3)
  - Drug effective for unapproved indication [Unknown]
  - Off label use [Unknown]
  - Myocardial infarction [Unknown]

NARRATIVE: CASE EVENT DATE: 2015
